FAERS Safety Report 9720745 (Version 1)
Quarter: 2013Q4

REPORT INFORMATION
  Report Type: Spontaneous
  Country: US (occurrence: US)
  Receive Date: 20131129
  Receipt Date: 20131129
  Transmission Date: 20140711
  Serious: Yes (Other)
  Sender: FDA-Public Use
  Company Number: PHEH2013US024805

PATIENT
  Sex: Female

DRUGS (3)
  1. RECLAST [Suspect]
     Dosage: UNK
     Route: 042
     Dates: start: 201205
  2. RECLAST [Suspect]
     Dosage: UNK
     Route: 042
     Dates: start: 201305
  3. ANTIBIOTICS [Concomitant]
     Dosage: UNK

REACTIONS (6)
  - Organ failure [Unknown]
  - Cholelithiasis [Unknown]
  - Hepatic cyst [Unknown]
  - Renal failure [Unknown]
  - Immune system disorder [Unknown]
  - Malaise [Unknown]
